FAERS Safety Report 22750798 (Version 3)
Quarter: 2024Q2

REPORT INFORMATION
  Report Type: Spontaneous
  Country: CZ (occurrence: None)
  Receive Date: 20230726
  Receipt Date: 20240426
  Transmission Date: 20240716
  Serious: Yes (Disabling, Other)
  Sender: FDA-Public Use
  Company Number: CZ-ROCHE-3392617

PATIENT
  Age: 73 Year
  Sex: Male

DRUGS (1)
  1. VABYSMO [Suspect]
     Active Substance: FARICIMAB\FARICIMAB-SVOA
     Indication: Product used for unknown indication
     Dosage: DOSE: 50UL
     Route: 050
     Dates: start: 20230424

REACTIONS (3)
  - Retinal pigment epithelial tear [Not Recovered/Not Resolved]
  - Haemorrhage [Unknown]
  - Visual impairment [Unknown]
